FAERS Safety Report 19765410 (Version 2)
Quarter: 2021Q4

REPORT INFORMATION
  Report Type: Spontaneous
  Country: US (occurrence: US)
  Receive Date: 20210831
  Receipt Date: 20211002
  Transmission Date: 20220303
  Serious: No
  Sender: FDA-Public Use
  Company Number: US-LUPIN PHARMACEUTICALS INC.-2021-15961

PATIENT
  Age: 23 Year
  Sex: Female

DRUGS (2)
  1. CEFTRIAXONE [Suspect]
     Active Substance: CEFTRIAXONE
     Indication: Antibiotic therapy
     Dosage: UNK (RECEIVED VIA INTRAVENOUS PUSH (CEFTRIAXONE CONCENTRATION WAS 1G/10ML VIALS), WHICH WAS RECONSTI
     Route: 042
  2. CEFTRIAXONE [Suspect]
     Active Substance: CEFTRIAXONE
     Indication: Pyelonephritis

REACTIONS (1)
  - Exposure during pregnancy [Unknown]
